FAERS Safety Report 14117068 (Version 1)
Quarter: 2017Q4

REPORT INFORMATION
  Report Type: Spontaneous
  Country: US (occurrence: US)
  Receive Date: 20171023
  Receipt Date: 20171023
  Transmission Date: 20180321
  Serious: No
  Sender: FDA-Public Use
  Company Number: US-MYLANLABS-2017M1066961

PATIENT
  Sex: Female

DRUGS (1)
  1. LEVOTHYROXINE. [Suspect]
     Active Substance: LEVOTHYROXINE
     Indication: PRODUCT USED FOR UNKNOWN INDICATION
     Dosage: UNK
     Dates: start: 20170808

REACTIONS (6)
  - Decreased appetite [Unknown]
  - Anxiety [Unknown]
  - Nervousness [Unknown]
  - Insomnia [Unknown]
  - Weight decreased [Unknown]
  - Palpitations [Unknown]

NARRATIVE: CASE EVENT DATE: 20171004
